FAERS Safety Report 12519762 (Version 1)
Quarter: 2016Q2

REPORT INFORMATION
  Report Type: Report from Study
  Country: DE (occurrence: DE)
  Receive Date: 20160630
  Receipt Date: 20160630
  Transmission Date: 20160815
  Serious: Yes (Death, Other)
  Sender: FDA-Public Use
  Company Number: DE-ROCHE-1781447

PATIENT

DRUGS (7)
  1. LEDIPASVIR/SOFOSBUVIR [Suspect]
     Active Substance: LEDIPASVIR\SOFOSBUVIR
     Indication: HEPATITIS C
     Dosage: LEDIPASVIR (90 MG) AND SOFOSBUVIR (400 MG), (COMBINATION TABLET)
     Route: 048
  2. RIBAVIRIN. [Suspect]
     Active Substance: RIBAVIRIN
     Indication: HEPATITIS C
     Dosage: 600-1200 MG
     Route: 048
  3. MYCOPHENOLATE MOFETIL. [Suspect]
     Active Substance: MYCOPHENOLATE MOFETIL
     Indication: IMMUNOSUPPRESSANT DRUG THERAPY
     Route: 065
  4. CYCLOSPORINE. [Suspect]
     Active Substance: CYCLOSPORINE
     Indication: IMMUNOSUPPRESSANT DRUG THERAPY
     Route: 065
  5. SIROLIMUS. [Suspect]
     Active Substance: SIROLIMUS
     Indication: IMMUNOSUPPRESSANT DRUG THERAPY
     Route: 065
  6. TACROLIMUS. [Suspect]
     Active Substance: TACROLIMUS
     Indication: IMMUNOSUPPRESSANT DRUG THERAPY
     Route: 065
  7. EVEROLIMUS [Suspect]
     Active Substance: EVEROLIMUS
     Indication: IMMUNOSUPPRESSANT DRUG THERAPY
     Route: 065

REACTIONS (29)
  - Escherichia sepsis [Fatal]
  - Gastroenteritis viral [Unknown]
  - Lung neoplasm malignant [Unknown]
  - Lower respiratory tract infection [Unknown]
  - Staphylococcal bacteraemia [Unknown]
  - Diarrhoea [Unknown]
  - Fall [Unknown]
  - Labyrinthitis [Unknown]
  - Renal cell carcinoma [Unknown]
  - Hepatocellular carcinoma [Fatal]
  - Anal abscess [Unknown]
  - Bronchial carcinoma [Fatal]
  - Staphylococcal sepsis [Fatal]
  - Hyperbilirubinaemia [Unknown]
  - Vomiting [Unknown]
  - Respiratory tract infection viral [Unknown]
  - Urosepsis [Unknown]
  - Haemophilus infection [Unknown]
  - Anaemia [Unknown]
  - Lymphopenia [Unknown]
  - Incarcerated umbilical hernia [Unknown]
  - Peritoneal tuberculosis [Unknown]
  - Sepsis [Fatal]
  - Squamous cell carcinoma [Unknown]
  - Cellulitis [Unknown]
  - Infection [Fatal]
  - Pneumonia [Fatal]
  - Cholangitis [Unknown]
  - Respiratory tract infection bacterial [Unknown]
